FAERS Safety Report 6753157-1 (Version None)
Quarter: 2010Q2

REPORT INFORMATION
  Report Type: 
  Country: None (occurrence: None)
  Receive Date: 20100601
  Receipt Date: 20100524
  Transmission Date: 20101027
  Serious: Yes (Disabling, Other)
  Sender: FDA-Public Use
  Company Number: DSA_42566_2010

PATIENT
  Sex: Male
  Weight: 105.6881 kg

DRUGS (8)
  1. XENAZINE [Suspect]
     Indication: TOURETTE'S DISORDER
     Dosage: 25 MG QD ORAL
     Route: 048
     Dates: start: 20091119, end: 20100131
  2. DEPAKOTE [Concomitant]
  3. CLOMIPRAMINE [Concomitant]
  4. HYDROXYZINE [Concomitant]
  5. PAROXETINE HCL [Concomitant]
  6. FLUVOXAMINE MALEATE [Concomitant]
  7. CLONIDINE [Concomitant]
  8. GEODON [Concomitant]

REACTIONS (5)
  - ABDOMINAL PAIN [None]
  - CONDITION AGGRAVATED [None]
  - NEUROLEPTIC MALIGNANT SYNDROME [None]
  - NON-CARDIAC CHEST PAIN [None]
  - TIC [None]
